FAERS Safety Report 9411671 (Version 1)
Quarter: 2013Q3

REPORT INFORMATION
  Report Type: Spontaneous
  Country: US (occurrence: US)
  Receive Date: 20130722
  Receipt Date: 20130722
  Transmission Date: 20140515
  Serious: Yes (Other)
  Sender: FDA-Public Use
  Company Number: US-JNJFOC-20130707596

PATIENT
  Age: 58 Year
  Sex: Male
  Weight: 90.72 kg

DRUGS (2)
  1. DURAGESIC [Suspect]
     Indication: BACK PAIN
     Dosage: 60 TO 72 HOURS
     Route: 062
     Dates: start: 201306
  2. DURAGESIC [Suspect]
     Indication: BACK PAIN
     Route: 062
     Dates: end: 201306

REACTIONS (7)
  - Hyperaesthesia [Not Recovered/Not Resolved]
  - Mental impairment [Not Recovered/Not Resolved]
  - Dysphoria [Unknown]
  - Withdrawal syndrome [Unknown]
  - Infrequent bowel movements [Not Recovered/Not Resolved]
  - Drug ineffective [Not Recovered/Not Resolved]
  - Dry mouth [Not Recovered/Not Resolved]
